FAERS Safety Report 26077227 (Version 1)
Quarter: 2025Q4

REPORT INFORMATION
  Report Type: Spontaneous
  Country: US (occurrence: US)
  Receive Date: 20251121
  Receipt Date: 20251121
  Transmission Date: 20260118
  Serious: Yes (Death, Other)
  Sender: B. BRAUN MEDICAL INC.
  Company Number: US-B. Braun Medical Inc.-US-BBM-202504458

PATIENT
  Age: 24 Year
  Sex: Female

DRUGS (1)
  1. APAP [Suspect]
     Active Substance: ACETAMINOPHEN
     Indication: Overdose
     Dosage: ^HANDFUL^

REACTIONS (3)
  - Encephalopathy [Fatal]
  - Intentional overdose [Fatal]
  - Toxicity to various agents [Fatal]
